FAERS Safety Report 20376767 (Version 2)
Quarter: 2022Q3

REPORT INFORMATION
  Report Type: Spontaneous
  Country: CA (occurrence: CA)
  Receive Date: 20220125
  Receipt Date: 20220927
  Transmission Date: 20221027
  Serious: No
  Sender: FDA-Public Use
  Company Number: US-SUNOVION-2022SUN000143

PATIENT
  Age: 70 Year
  Sex: Female

DRUGS (1)
  1. KYNMOBI [Suspect]
     Active Substance: APOMORPHINE HYDROCHLORIDE
     Indication: Parkinson^s disease
     Dosage: UNK
     Route: 060
     Dates: start: 202110

REACTIONS (6)
  - Withdrawal syndrome [Unknown]
  - Panic attack [Unknown]
  - Therapeutic product effect increased [Unknown]
  - Insomnia [Unknown]
  - Fatigue [Unknown]
  - Somnolence [Unknown]
